FAERS Safety Report 9752705 (Version 3)
Quarter: 2013Q4

REPORT INFORMATION
  Report Type: Report from Study
  Country: CA (occurrence: CA)
  Receive Date: 20131213
  Receipt Date: 20131224
  Transmission Date: 20140711
  Serious: Yes (Hospitalization, Other)
  Sender: FDA-Public Use
  Company Number: CA-ASTELLAS-2012US011561

PATIENT
  Age: 32 Year
  Sex: Male

DRUGS (4)
  1. TACROLIMUS MR4 CAPSULES [Suspect]
     Indication: RENAL TRANSPLANT
     Dosage: 14 UNK, UID/QD
     Route: 048
     Dates: start: 20121116, end: 20121123
  2. MYFORTIC [Concomitant]
     Indication: RENAL TRANSPLANT
     Dosage: UNK
     Route: 048
     Dates: start: 20121115, end: 20121123
  3. PREDNISONE [Concomitant]
     Indication: RENAL TRANSPLANT
     Dosage: UNK
     Route: 048
     Dates: start: 20121115
  4. SOLUMEDROL [Concomitant]
     Indication: RENAL TRANSPLANT
     Dosage: UNK
     Route: 042
     Dates: start: 20121121

REACTIONS (3)
  - Renal artery thrombosis [Recovered/Resolved with Sequelae]
  - Renal transplant failure [Recovered/Resolved with Sequelae]
  - Postoperative wound infection [Recovered/Resolved]
